FAERS Safety Report 17065346 (Version 1)
Quarter: 2019Q4

REPORT INFORMATION
  Report Type: Spontaneous
  Country: US (occurrence: US)
  Receive Date: 20191122
  Receipt Date: 20191122
  Transmission Date: 20200122
  Serious: Yes (Hospitalization)
  Sender: FDA-Public Use
  Company Number: None

PATIENT
  Age: 54 Year
  Sex: Female

DRUGS (11)
  1. ATORVASTATIN [Concomitant]
     Active Substance: ATORVASTATIN
  2. TURMERIC [Concomitant]
     Active Substance: HERBALS\TURMERIC
  3. GLATIRAMER [Suspect]
     Active Substance: GLATIRAMER
     Indication: MULTIPLE SCLEROSIS
     Dosage: ?          OTHER FREQUENCY:TIW;?
     Route: 058
     Dates: start: 20171128
  4. ASPIRIN. [Concomitant]
     Active Substance: ASPIRIN
  5. LINIOPRIL [Concomitant]
  6. BACLOFEN. [Concomitant]
     Active Substance: BACLOFEN
  7. GLIPIZIDE. [Concomitant]
     Active Substance: GLIPIZIDE
  8. JANUVIA [Concomitant]
     Active Substance: SITAGLIPTIN PHOSPHATE
  9. METFORMIN [Concomitant]
     Active Substance: METFORMIN HYDROCHLORIDE
  10. METOPROLOL TARTRATE. [Concomitant]
     Active Substance: METOPROLOL TARTRATE
  11. IBUPOFEN [Concomitant]

REACTIONS (2)
  - Infection [None]
  - Foot fracture [None]
